FAERS Safety Report 7545403-1 (Version None)
Quarter: 2011Q2

REPORT INFORMATION
  Report Type: 
  Country: None (occurrence: None)
  Receive Date: 20110613
  Receipt Date: 20110613
  Transmission Date: 20111010
  Serious: No
  Sender: FDA-Public Use
  Company Number: None

PATIENT
  Sex: Female

DRUGS (1)
  1. HUMIRA [Suspect]
     Indication: RHEUMATOID ARTHRITIS
     Dosage: 40MG EVERY 2 WEEKS SUBCUTANEOUSLY
     Route: 058
     Dates: start: 20110509

REACTIONS (3)
  - SWELLING FACE [None]
  - RASH MACULO-PAPULAR [None]
  - RASH PRURITIC [None]
